FAERS Safety Report 12259350 (Version 1)
Quarter: 2016Q2

REPORT INFORMATION
  Report Type: Spontaneous
  Country: US (occurrence: US)
  Receive Date: 20160412
  Receipt Date: 20160412
  Transmission Date: 20160815
  Serious: No
  Sender: FDA-Public Use
  Company Number: US-SA-2015SA079907

PATIENT
  Sex: Female

DRUGS (1)
  1. ALLEGRA ALLERGY [Suspect]
     Active Substance: FEXOFENADINE HYDROCHLORIDE
     Indication: MULTIPLE ALLERGIES
     Dosage: PATIENT TAKING THE ALLEGRA FOR MANY YEARS DURING ALLERGY SEASON. THIS YEAR THEY STARTED IN MAY.
     Route: 048
     Dates: start: 201505

REACTIONS (2)
  - Hypersensitivity [Not Recovered/Not Resolved]
  - Drug ineffective [Unknown]
